FAERS Safety Report 4749111-1 (Version None)
Quarter: 2005Q3

REPORT INFORMATION
  Report Type: 
  Country: None (occurrence: None)
  Receive Date: 20050817
  Receipt Date: 20050801
  Transmission Date: 20060218
  Serious: Yes (Other)
  Sender: FDA-Public Use
  Company Number: 11997

PATIENT

DRUGS (9)
  1. EPIRUBICIN [Suspect]
     Indication: BREAST CANCER
     Dosage: 35 MG/M2 OTH IA
     Route: 014
  2. EPIRUBICIN [Suspect]
     Indication: BREAST CANCER
     Dosage: 70 MG/M2 PER_CYCLE
  3. PACLITAXEL [Suspect]
     Indication: BREAST CANCER
     Dosage: 80 MG/M2 OTH IV
     Route: 042
  4. FLUOROURACIL [Suspect]
     Indication: BREAST CANCER
     Dosage: 500 MG/M2 PER_CYCLE
  5. CYCLOIPHOSPHAMIDE [Suspect]
     Indication: BREAST CANCER
     Dosage: 500 MG/M2 PER (CYCLE
  6. DEXAMETHASONE [Concomitant]
  7. DIPHENHYDRAMINE HCL [Concomitant]
  8. CIMETIDINE [Concomitant]
  9. METOCLOPRAMIDE [Concomitant]

REACTIONS (1)
  - FEBRILE NEUTROPENIA [None]
